FAERS Safety Report 9486940 (Version 3)
Quarter: 2013Q3

REPORT INFORMATION
  Report Type: Spontaneous
  Country: GB (occurrence: None)
  Receive Date: 20130823
  Receipt Date: 20130911
  Transmission Date: 20140515
  Serious: Yes (Other)
  Sender: FDA-Public Use
  Company Number: AUR-APL-2013-06803

PATIENT
  Age: 44 Year
  Sex: Male

DRUGS (3)
  1. RIBAVIRIN [Suspect]
     Indication: HEPATITIS C
     Route: 048
     Dates: start: 20120912
  2. PEGINTERFERON ALFA-2B [Suspect]
     Indication: HEPATITIS C
     Route: 058
     Dates: start: 201209
  3. INCIVO [Suspect]
     Indication: HEPATITIS C
     Dosage: 2250MG (750MG, 1 IN 8 HR)
     Route: 048
     Dates: start: 20120912, end: 20121205

REACTIONS (4)
  - Sciatica [None]
  - Nausea [None]
  - Lethargy [None]
  - Emotional disorder [None]
